FAERS Safety Report 8360882-8 (Version None)
Quarter: 2012Q2

REPORT INFORMATION
  Report Type: 
  Country: None (occurrence: None)
  Receive Date: 20120515
  Receipt Date: 20120514
  Transmission Date: 20120825
  Serious: Yes (Life-Threatening, Hospitalization, Disabling)
  Sender: FDA-Public Use
  Company Number: DE-ROCHE-1060620

PATIENT
  Sex: Female
  Weight: 54 kg

DRUGS (3)
  1. CITALOPRAM HYDROBROMIDE [Concomitant]
     Indication: DEPRESSION
     Route: 048
  2. ENOXAPARIN SODIUM [Suspect]
     Indication: PULMONARY EMBOLISM
     Route: 058
     Dates: start: 20120301
  3. AVASTIN [Suspect]
     Indication: BREAST CANCER
     Dosage: HE LAST DOSE PRIOR TO SAE WAS ON 30/MAR/2012
     Route: 042

REACTIONS (4)
  - SOMNOLENCE [None]
  - SUBDURAL HAEMATOMA [None]
  - GENERAL PHYSICAL HEALTH DETERIORATION [None]
  - PYREXIA [None]
